FAERS Safety Report 8887176 (Version 3)
Quarter: 2013Q1

REPORT INFORMATION
  Report Type: Spontaneous
  Country: US (occurrence: US)
  Receive Date: 20121105
  Receipt Date: 20130204
  Transmission Date: 20140127
  Serious: Yes (Disabling, Other)
  Sender: FDA-Public Use
  Company Number: US-PFIZER INC-2012274211

PATIENT
  Age: 40 Year
  Sex: Female
  Weight: 81.63 kg

DRUGS (8)
  1. LYRICA [Suspect]
     Indication: FIBROMYALGIA
     Dosage: 150 MG, 2X/DAY
  2. LYRICA [Suspect]
     Indication: SURGERY
  3. NORPACE CR [Suspect]
     Indication: HEART RATE IRREGULAR
     Dosage: 100 MG, DAILY
     Dates: start: 1988
  4. PREMPRO [Suspect]
     Indication: HOT FLUSH
     Dosage: 70/1.5 MG, DAILY
  5. CELEBREX [Suspect]
     Indication: MUSCLE RELAXANT THERAPY
     Dosage: 200 MG, 2X/DAY
     Dates: start: 2003
  6. CELEBREX [Suspect]
     Indication: MOVEMENT DISORDER
  7. LIPITOR [Suspect]
     Indication: BLOOD CHOLESTEROL INCREASED
     Dosage: 20 MG, DAILY
     Dates: start: 2003
  8. LEVOXYL [Concomitant]
     Indication: HYPERTHYROIDISM
     Dosage: 0.1 MG, DAILY

REACTIONS (6)
  - Back disorder [Unknown]
  - Lymphoma [Unknown]
  - Fibromyalgia [Not Recovered/Not Resolved]
  - Impaired driving ability [Unknown]
  - Neuropathy peripheral [Unknown]
  - Pain [Unknown]
